FAERS Safety Report 14609816 (Version 1)
Quarter: 2018Q1

REPORT INFORMATION
  Report Type: Spontaneous
  Country: ES (occurrence: ES)
  Receive Date: 20180307
  Receipt Date: 20180307
  Transmission Date: 20180509
  Serious: Yes (Life-Threatening, Hospitalization)
  Sender: FDA-Public Use
  Company Number: ES-TEVA-2018-ES-863903

PATIENT
  Age: 69 Year
  Sex: Male
  Weight: 80 kg

DRUGS (2)
  1. CISPLATINO ACCORD1 MG/MLCONC.PARA SOLUCION PARA PERF [Suspect]
     Active Substance: CISPLATIN
     Indication: DIFFUSE LARGE B-CELL LYMPHOMA
     Dosage: 50 MG DAY 1 TO 4  EVERY 21 DAYS
     Route: 042
     Dates: start: 20170306, end: 20170403
  2. ETOPOSIDO TEVA 20 MG/ML CONC PARA SOLUCION PARA PERF [Suspect]
     Active Substance: ETOPOSIDE
     Indication: DIFFUSE LARGE B-CELL LYMPHOMA
     Dosage: 79 MG DAY 1 TO 4 EVERY 21 DAYS
     Route: 042
     Dates: start: 20170306, end: 20170403

REACTIONS (1)
  - Intestinal perforation [Recovered/Resolved]

NARRATIVE: CASE EVENT DATE: 20170404
